FAERS Safety Report 10055511 (Version 2)
Quarter: 2014Q2

REPORT INFORMATION
  Report Type: Spontaneous
  Country: US (occurrence: US)
  Receive Date: 20140403
  Receipt Date: 20140528
  Transmission Date: 20141212
  Serious: No
  Sender: FDA-Public Use
  Company Number: US-009507513-1404USA002232

PATIENT
  Age: 88 Year
  Sex: Male

DRUGS (3)
  1. TICE BCG LIVE [Suspect]
     Route: 043
     Dates: start: 20140224, end: 20140224
  2. TICE BCG LIVE [Suspect]
     Route: 043
     Dates: start: 20140303, end: 20140303
  3. TICE BCG LIVE [Suspect]
     Dosage: UNK
     Route: 043
     Dates: start: 20140310, end: 20140310

REACTIONS (4)
  - Incorrect product storage [Unknown]
  - Incorrect product storage [Unknown]
  - Incorrect product storage [Unknown]
  - No adverse event [Unknown]
